FAERS Safety Report 16792204 (Version 2)
Quarter: 2019Q4

REPORT INFORMATION
  Report Type: Spontaneous
  Country: US (occurrence: US)
  Receive Date: 20190910
  Receipt Date: 20191022
  Transmission Date: 20200122
  Serious: Yes (Other)
  Sender: FDA-Public Use
  Company Number: US-BAUSCH-BL-2019-025074

PATIENT
  Age: 66 Year
  Sex: Female
  Weight: 68.1 kg

DRUGS (3)
  1. LYRICA [Suspect]
     Active Substance: PREGABALIN
     Indication: NEURALGIA
     Dosage: 300MG IN TWO TABLETS
     Route: 065
  2. ATIVAN [Suspect]
     Active Substance: LORAZEPAM
     Indication: ANXIETY
     Route: 065
     Dates: end: 2019
  3. LYRICA [Suspect]
     Active Substance: PREGABALIN
     Dosage: REDUCED TO 150MG
     Route: 065

REACTIONS (7)
  - Prescription drug used without a prescription [Unknown]
  - Spinal stenosis [Unknown]
  - Urticaria [Recovering/Resolving]
  - Spinal operation [Unknown]
  - Herpes zoster [Recovering/Resolving]
  - Feeling abnormal [Unknown]
  - Pain in extremity [Not Recovered/Not Resolved]

NARRATIVE: CASE EVENT DATE: 201804
